FAERS Safety Report 8876218 (Version 3)
Quarter: 2012Q4

REPORT INFORMATION
  Report Type: 
  Country: AU (occurrence: AU)
  Receive Date: 20121030
  Receipt Date: 20121226
  Transmission Date: 20130627
  Serious: Yes (Life-Threatening, Other)
  Sender: FDA-Public Use
  Company Number: AU-B.I. PHARMACEUTICALS,INC./RIDGEFIELD-2012-AU-01803AU

PATIENT
  Age: 82 Year
  Sex: Female
  Weight: 78 kg

DRUGS (7)
  1. PRADAXA [Suspect]
     Indication: ATRIAL FIBRILLATION
     Dosage: 110 mg
     Dates: end: 20121009
  2. KARVEA [Concomitant]
  3. LIPITOR [Concomitant]
  4. VENTOLIN [Concomitant]
     Indication: ASTHMA
  5. FLIXOTIDE [Concomitant]
     Indication: ASTHMA
  6. INTRAGRAM [Concomitant]
     Indication: IMMUNE SYSTEM DISORDER
  7. SOMAC [Concomitant]

REACTIONS (3)
  - Deep vein thrombosis [Recovered/Resolved]
  - Oedema peripheral [Recovered/Resolved]
  - Off label use [Unknown]
